FAERS Safety Report 8764184 (Version 3)
Quarter: 2012Q4

REPORT INFORMATION
  Report Type: 
  Country: BE (occurrence: BE)
  Receive Date: 20120831
  Receipt Date: 20120925
  Transmission Date: 20130627
  Serious: Yes (Death, Life-Threatening, Hospitalization, Other)
  Sender: FDA-Public Use
  Company Number: BE-NOVOPROD-358818

PATIENT
  Age: 63 Year
  Sex: Male

DRUGS (20)
  1. VICTOZA [Suspect]
     Indication: TYPE 2 DIABETES MELLITUS
     Dosage: 0.6 mg, qd
     Route: 065
     Dates: start: 201101
  2. VICTOZA [Suspect]
     Dosage: 1.2 mg, qd
     Route: 065
  3. VICTOZA [Suspect]
     Dosage: 1.8 mg, qd
     Route: 065
     Dates: start: 201202, end: 201204
  4. ACTRAPID [Concomitant]
     Dosage: 24 U, UNK
  5. NOBITEN                            /01339101/ [Concomitant]
     Dosage: 5 mg, qd
     Route: 065
     Dates: end: 20120524
  6. TRITACE [Concomitant]
     Dosage: 10 mg (1x1/2/day)
     Dates: end: 20120524
  7. LIPITOR [Concomitant]
     Dosage: 40 mg (1x1/day)
  8. TERAZOSIN [Concomitant]
     Dosage: 2x1/2/day to 2x1/day depending on blood pressure
     Dates: start: 20120524
  9. SIPRALEXA                          /01588501/ [Concomitant]
     Dosage: 10 mg (1x1/ day)
  10. GLUCOVANCE [Concomitant]
     Dosage: 500/5 (2x1/day)
  11. OMEPRAZOLE [Concomitant]
     Dosage: 20 mg (1x1/day)
  12. ZYLORIC [Concomitant]
     Dosage: 300 mg (1x1/day)
  13. MOVICOL                            /01625101/ [Concomitant]
  14. FRAXIPARINE                        /01437701/ [Concomitant]
     Dosage: 0.3 mg (1x1/day)
  15. VOLTAREN                           /00372301/ [Concomitant]
     Dosage: 2x1/day
  16. TRANSTEC [Concomitant]
     Dosage: 35 ?g (1x/3 days)
  17. PERFUSALGAN [Concomitant]
     Dosage: 1g (4x1/day)
     Route: 042
  18. MORFINE [Concomitant]
     Dosage: 6x/day maximum
     Route: 058
  19. SOLUMEDROL [Concomitant]
     Dosage: 40 mg (1x/day)
     Route: 042
  20. TRAZOLAN [Concomitant]
     Dosage: 100 mg, bid

REACTIONS (1)
  - Medullary thyroid cancer [Fatal]
